FAERS Safety Report 17151946 (Version 1)
Quarter: 2019Q4

REPORT INFORMATION
  Report Type: Spontaneous
  Country: US (occurrence: US)
  Receive Date: 20191213
  Receipt Date: 20191213
  Transmission Date: 20200122
  Serious: Yes (Death, Other)
  Sender: FDA-Public Use
  Company Number: US-009507513-1912USA005395

PATIENT
  Age: 53 Year
  Sex: Male

DRUGS (8)
  1. PRINIVIL [Suspect]
     Active Substance: LISINOPRIL
     Dosage: UNK
     Route: 048
  2. WARFARIN [Suspect]
     Active Substance: WARFARIN
     Dosage: UNK
     Route: 048
  3. AMLODIPINE [Suspect]
     Active Substance: AMLODIPINE BESYLATE
     Dosage: UNK
     Route: 048
  4. ALCOHOL. [Suspect]
     Active Substance: ALCOHOL
     Dosage: UNK
     Route: 048
  5. FLUOXETINE [Suspect]
     Active Substance: FLUOXETINE HYDROCHLORIDE
     Dosage: UNK
     Route: 048
  6. FLUOXETINE [Suspect]
     Active Substance: FLUOXETINE HYDROCHLORIDE
     Dosage: UNK
     Route: 048
  7. METOPROLOL. [Suspect]
     Active Substance: METOPROLOL
     Dosage: UNK; FORMULATION REPORTED AS EXTENDED RELEASE
     Route: 048
  8. ALCOHOL. [Suspect]
     Active Substance: ALCOHOL
     Dosage: UNK
     Route: 048

REACTIONS (1)
  - Suspected suicide [Fatal]
